FAERS Safety Report 8217514-9 (Version None)
Quarter: 2012Q1

REPORT INFORMATION
  Report Type: 
  Country: None (occurrence: None)
  Receive Date: 20120314
  Receipt Date: 20120302
  Transmission Date: 20120608
  Serious: Yes (Other)
  Sender: FDA-Public Use
  Company Number: DEP_00585_2012

PATIENT
  Sex: Female
  Weight: 68.0396 kg

DRUGS (8)
  1. XANAX [Concomitant]
  2. OXYCODONE HCL [Concomitant]
  3. GRALISE [Suspect]
     Indication: NEURALGIA
     Dosage: (GRALISE 30 DAY STARTER PACK ORAL)
     Route: 048
     Dates: start: 20120229, end: 20120301
  4. GRALISE [Suspect]
     Indication: OFF LABEL USE
     Dosage: (GRALISE 30 DAY STARTER PACK ORAL)
     Route: 048
     Dates: start: 20120229, end: 20120301
  5. COLD MEDICATIONS [Concomitant]
  6. MOTRIN [Concomitant]
  7. TYLENOL (CAPLET) [Concomitant]
  8. ANTIBIOTICS [Concomitant]

REACTIONS (3)
  - HEADACHE [None]
  - MUSCLE TWITCHING [None]
  - DYSKINESIA [None]
